FAERS Safety Report 14068645 (Version 3)
Quarter: 2018Q1

REPORT INFORMATION
  Report Type: Spontaneous
  Country: US (occurrence: US)
  Receive Date: 20171010
  Receipt Date: 20180214
  Transmission Date: 20180508
  Serious: No
  Sender: FDA-Public Use
  Company Number: US-PFIZER INC-2017432442

PATIENT
  Age: 65 Year
  Sex: Male

DRUGS (1)
  1. XELJANZ XR [Suspect]
     Active Substance: TOFACITINIB CITRATE
     Indication: RHEUMATOID ARTHRITIS
     Dosage: 11 MG, DAILY
     Route: 048
     Dates: start: 201709, end: 20180124

REACTIONS (8)
  - Condition aggravated [Unknown]
  - Drug ineffective [Unknown]
  - Plantar fasciitis [Unknown]
  - Fatigue [Unknown]
  - Arthralgia [Unknown]
  - Upper respiratory tract infection [Unknown]
  - Onychomycosis [Unknown]
  - Headache [Unknown]

NARRATIVE: CASE EVENT DATE: 2017
